FAERS Safety Report 17125455 (Version 1)
Quarter: 2019Q4

REPORT INFORMATION
  Report Type: Report from Study
  Country: IT (occurrence: IT)
  Receive Date: 20191207
  Receipt Date: 20191207
  Transmission Date: 20200122
  Serious: Yes (Other)
  Sender: FDA-Public Use
  Company Number: IT-ACCORD-164277

PATIENT
  Age: 81 Year
  Sex: Female

DRUGS (9)
  1. CANRENONE [Suspect]
     Active Substance: CANRENONE
     Indication: CHRONIC KIDNEY DISEASE
     Route: 048
     Dates: end: 20191022
  2. FUROSEMIDE. [Concomitant]
     Active Substance: FUROSEMIDE
  3. RAMIPRIL. [Suspect]
     Active Substance: RAMIPRIL
     Indication: CHRONIC KIDNEY DISEASE
     Route: 048
     Dates: end: 20191022
  4. PANTOPRAZOLE [Concomitant]
     Active Substance: PANTOPRAZOLE
  5. GLYCERYL TRINITRATE [Concomitant]
     Active Substance: NITROGLYCERIN
  6. AMIODARONE [Concomitant]
     Active Substance: AMIODARONE
  7. BISOPROLOL [Concomitant]
     Active Substance: BISOPROLOL
  8. CLEXANE [Concomitant]
     Active Substance: ENOXAPARIN SODIUM
  9. ALLOPURINOL. [Concomitant]
     Active Substance: ALLOPURINOL

REACTIONS (3)
  - Hyperkalaemia [Recovering/Resolving]
  - Hyponatraemia [Recovering/Resolving]
  - Electrolyte imbalance [Recovering/Resolving]

NARRATIVE: CASE EVENT DATE: 20191022
